FAERS Safety Report 20436500 (Version 1)
Quarter: 2022Q1

REPORT INFORMATION
  Report Type: Report from Study
  Country: JP (occurrence: JP)
  Receive Date: 20220207
  Receipt Date: 20220207
  Transmission Date: 20220423
  Serious: Yes (Other)
  Sender: FDA-Public Use
  Company Number: JP-CHUGAI-A2018032990AA

PATIENT
  Sex: Female

DRUGS (7)
  1. PERTUZUMAB [Suspect]
     Active Substance: PERTUZUMAB
     Indication: Breast cancer
     Dosage: (FORM STRENGTH: 420 MG/14 ML) 840MG,ONCE IN1DAY
     Route: 041
     Dates: start: 20170720, end: 20170720
  2. PERTUZUMAB [Suspect]
     Active Substance: PERTUZUMAB
     Dosage: 420MG,ONCE IN3WEEK
     Route: 041
     Dates: start: 20170810, end: 20171218
  3. PERTUZUMAB [Suspect]
     Active Substance: PERTUZUMAB
     Dosage: 420MG,ONCE IN3WEEK
     Route: 041
     Dates: start: 20180125, end: 20180215
  4. TRASTUZUMAB [Suspect]
     Active Substance: TRASTUZUMAB
     Indication: Breast cancer
     Dosage: 8MG/KG,ONCE IN1DAY
     Route: 041
     Dates: start: 20170720, end: 20170720
  5. TRASTUZUMAB [Suspect]
     Active Substance: TRASTUZUMAB
     Dosage: 6MG/KG,ONCE IN3WEEK
     Route: 041
     Dates: start: 20170810, end: 20171218
  6. TRASTUZUMAB [Suspect]
     Active Substance: TRASTUZUMAB
     Dosage: 6MG/KG,ONCE IN3WEEK
     Route: 041
     Dates: start: 20180125, end: 20180215
  7. ERIBULIN [Suspect]
     Active Substance: ERIBULIN
     Indication: Breast cancer
     Dosage: UNKNOWN
     Route: 041

REACTIONS (1)
  - Neutropenia [Recovered/Resolved]

NARRATIVE: CASE EVENT DATE: 20171218
